FAERS Safety Report 4574817-7 (Version None)
Quarter: 2005Q1

REPORT INFORMATION
  Report Type: 
  Country: None (occurrence: None)
  Receive Date: 20050208
  Receipt Date: 20040707
  Transmission Date: 20050727
  Serious: No
  Sender: FDA-Public Use
  Company Number: US-GLAXOSMITHKLINE-A0517272A

PATIENT
  Age: 52 Year
  Sex: Female

DRUGS (5)
  1. PAXIL CR [Suspect]
     Indication: PANIC DISORDER
     Dosage: 25MG VARIABLE DOSE
     Route: 048
     Dates: start: 19950101
  2. ATENOLOL [Concomitant]
  3. DYAZIDE [Concomitant]
  4. ACTOS [Concomitant]
  5. LIPITOR [Concomitant]

REACTIONS (3)
  - ABNORMAL DREAMS [None]
  - DIZZINESS [None]
  - PARAESTHESIA [None]
